FAERS Safety Report 4944608-3 (Version None)
Quarter: 2006Q1

REPORT INFORMATION
  Report Type: 
  Country: None (occurrence: None)
  Receive Date: 20060315
  Receipt Date: 20060305
  Transmission Date: 20060701
  Serious: Yes (Hospitalization, Other)
  Sender: FDA-Public Use
  Company Number: NSADSS2003001707

PATIENT
  Sex: Female
  Weight: 83.46 kg

DRUGS (15)
  1. REMICADE [Suspect]
     Dosage: RECEIVED A TOTAL OF 9 INFUSIONS
     Route: 041
     Dates: start: 20010809
  2. REMICADE [Suspect]
     Indication: RHEUMATOID ARTHRITIS
     Route: 041
     Dates: start: 20010809
  3. PREMARIN [Concomitant]
  4. CELEBREX [Concomitant]
  5. ARAVA [Concomitant]
  6. LIPITOR [Concomitant]
  7. PREDNISONE [Concomitant]
  8. ZANTAC [Concomitant]
     Route: 048
  9. TOPROL-XL [Concomitant]
  10. ASPIRIN [Concomitant]
  11. PREMARIN [Concomitant]
  12. ARAVA [Concomitant]
  13. HYDROCHLOROTHIAZIDE [Concomitant]
  14. K-DUR 10 [Concomitant]
  15. ZOCOR [Concomitant]
     Route: 048

REACTIONS (10)
  - ANAEMIA [None]
  - CHEST PAIN [None]
  - ELECTROCARDIOGRAM ST-T CHANGE [None]
  - HYPERTENSION [None]
  - PLEURAL EFFUSION [None]
  - PNEUMONIA [None]
  - PULMONARY TUBERCULOSIS [None]
  - SINUS TACHYCARDIA [None]
  - TACHYCARDIA [None]
  - TUBERCULOSIS [None]
